FAERS Safety Report 7386653-7 (Version None)
Quarter: 2011Q1

REPORT INFORMATION
  Report Type: 
  Country: None (occurrence: None)
  Receive Date: 20110323
  Receipt Date: 20110308
  Transmission Date: 20110831
  Serious: No
  Sender: FDA-Public Use
  Company Number: AUR-APU-2011-00896

PATIENT
  Sex: Male

DRUGS (1)
  1. FINASTERIDE [Suspect]
     Dosage: 5 MG

REACTIONS (6)
  - FAECES DISCOLOURED [None]
  - LIPASE INCREASED [None]
  - CHOLELITHIASIS [None]
  - BACK PAIN [None]
  - BLOOD AMYLASE INCREASED [None]
  - CONDITION AGGRAVATED [None]
